FAERS Safety Report 8120273-1 (Version None)
Quarter: 2012Q1

REPORT INFORMATION
  Report Type: 
  Country: None (occurrence: None)
  Receive Date: 20120207
  Receipt Date: 20120126
  Transmission Date: 20120608
  Serious: Yes (Other)
  Sender: FDA-Public Use
  Company Number: CHPA2012US002237

PATIENT
  Age: 56 Year
  Sex: Female

DRUGS (3)
  1. NODOZ [Suspect]
     Indication: SOMNOLENCE
     Dosage: .5 DF, QD
     Route: 048
  2. MAALOX ADV MAXIMUM STRENGTH ANTACID/ANTIGAS [Concomitant]
     Indication: ULCER
  3. EXCEDRIN MIGRAINE CAPLETS [Concomitant]
     Indication: MIGRAINE
     Dosage: 1 - 2, UNK

REACTIONS (1)
  - COELIAC DISEASE [None]
